FAERS Safety Report 4458053-0 (Version None)
Quarter: 2004Q3

REPORT INFORMATION
  Report Type: 
  Country: None (occurrence: None)
  Receive Date: 20040922
  Receipt Date: 20040910
  Transmission Date: 20050211
  Serious: Yes (Hospitalization)
  Sender: FDA-Public Use
  Company Number: HQWYE191611AUG04

PATIENT
  Age: 65 Year
  Sex: Male

DRUGS (7)
  1. INDERAL [Suspect]
     Indication: HYPERTENSION
     Dosage: 30 MG 1X PER 1 DAY ORAL
     Route: 048
     Dates: end: 20040716
  2. FENOFIBRATE [Suspect]
     Indication: HYPERLIPIDAEMIA
     Dosage: ORAL
     Route: 048
     Dates: end: 20040716
  3. MICARDIS [Concomitant]
  4. NIZATIDINE [Concomitant]
  5. SELBEX (TEPRENONE) [Concomitant]
  6. URSOSAN (URSODEOXYCHOLIC ACID) [Concomitant]
  7. NATRIX (INDAPAMIDE) [Concomitant]

REACTIONS (3)
  - HEPATIC FUNCTION ABNORMAL [None]
  - HEPATIC STEATOSIS [None]
  - LYMPHOCYTE STIMULATION TEST POSITIVE [None]
